FAERS Safety Report 14494147 (Version 3)
Quarter: 2018Q1

REPORT INFORMATION
  Report Type: Report from Study
  Country: DE (occurrence: DE)
  Receive Date: 20180206
  Receipt Date: 20180226
  Transmission Date: 20180509
  Serious: Yes (Life-Threatening, Hospitalization, Other)
  Sender: FDA-Public Use
  Company Number: PHHY2017DE158147

PATIENT
  Age: 49 Year
  Sex: Male
  Weight: 120 kg

DRUGS (3)
  1. COSENTYX [Suspect]
     Active Substance: SECUKINUMAB
     Indication: ANKYLOSING SPONDYLITIS
     Dosage: 300 MG (PRE-FILLED PEN)
     Route: 065
     Dates: start: 20160112
  2. COSENTYX [Suspect]
     Active Substance: SECUKINUMAB
     Indication: PSORIASIS
     Dosage: 300 MG (PRE-FILLED PEN)
     Route: 065
     Dates: start: 20151014, end: 20151108
  3. COSENTYX [Suspect]
     Active Substance: SECUKINUMAB
     Indication: PSORIATIC ARTHROPATHY
     Dosage: 300 MG (PRE-FILLED PEN)
     Route: 065
     Dates: start: 20151109, end: 20160111

REACTIONS (4)
  - Diabetes mellitus [Not Recovered/Not Resolved]
  - Paresis [Unknown]
  - Hemiparesis [Recovered/Resolved with Sequelae]
  - Cerebral infarction [Recovered/Resolved with Sequelae]

NARRATIVE: CASE EVENT DATE: 20171025
